FAERS Safety Report 6370918-1 (Version None)
Quarter: 2009Q3

REPORT INFORMATION
  Report Type: 
  Country: None (occurrence: None)
  Receive Date: 20090923
  Receipt Date: 20070702
  Transmission Date: 20100115
  Serious: Yes (Hospitalization, Disabling)
  Sender: FDA-Public Use
  Company Number: US-ASTRAZENECA-2006UW23183

PATIENT
  Age: 517 Month
  Sex: Female
  Weight: 101.2 kg

DRUGS (9)
  1. SEROQUEL [Suspect]
     Indication: DEPRESSION
     Dosage: 100 TO 300 MG
     Route: 048
     Dates: start: 20040422
  2. SEROQUEL [Suspect]
     Route: 048
     Dates: start: 20040101, end: 20040901
  3. ABILIFY [Concomitant]
     Route: 048
     Dates: start: 20050907
  4. WELLBUTRIN [Concomitant]
     Route: 048
     Dates: start: 20050907
  5. AMBIEN [Concomitant]
     Route: 048
     Dates: start: 20050907
  6. PREVACID [Concomitant]
     Route: 048
     Dates: start: 20050907
  7. NASONEX [Concomitant]
     Dosage: ONCE A DAY
     Route: 045
     Dates: start: 20050907
  8. GLUCOPHAGE [Concomitant]
     Route: 048
     Dates: start: 20050907
  9. SIMVASTATIN [Concomitant]
     Route: 048
     Dates: start: 20050907

REACTIONS (2)
  - OVERDOSE [None]
  - TYPE 2 DIABETES MELLITUS [None]
